FAERS Safety Report 18364551 (Version 1)
Quarter: 2020Q4

REPORT INFORMATION
  Report Type: Spontaneous
  Country: US (occurrence: US)
  Receive Date: 20201008
  Receipt Date: 20201008
  Transmission Date: 20210114
  Serious: No
  Sender: FDA-Public Use
  Company Number: None

PATIENT

DRUGS (1)
  1. PHENYTOIN 100 MG [Suspect]
     Active Substance: PHENYTOIN

REACTIONS (4)
  - Stevens-Johnson syndrome [None]
  - Disseminated intravascular coagulation [None]
  - Vasculitis [None]
  - Drug reaction with eosinophilia and systemic symptoms [None]

NARRATIVE: CASE EVENT DATE: 20200302
